FAERS Safety Report 8102651-X (Version None)
Quarter: 2012Q1

REPORT INFORMATION
  Report Type: 
  Country: None (occurrence: None)
  Receive Date: 20120201
  Receipt Date: 20120123
  Transmission Date: 20120608
  Serious: No
  Sender: FDA-Public Use
  Company Number: DE-US-EMD SERONO, INC.-7072652

PATIENT
  Sex: Female
  Weight: 63 kg

DRUGS (1)
  1. REBIF [Suspect]
     Indication: MULTIPLE SCLEROSIS
     Route: 058
     Dates: start: 20100601

REACTIONS (5)
  - PAIN [None]
  - DERMATITIS [None]
  - SKIN DISCOLOURATION [None]
  - INJECTION SITE NECROSIS [None]
  - SCAR [None]
